FAERS Safety Report 8932548 (Version 1)
Quarter: 2012Q4

REPORT INFORMATION
  Report Type: Spontaneous
  Country: US (occurrence: None)
  Receive Date: 20121126
  Receipt Date: 20121126
  Transmission Date: 20130627
  Serious: Yes (Other)
  Sender: FDA-Public Use
  Company Number: None

PATIENT
  Age: 51 Year
  Sex: Female
  Weight: 139.71 kg

DRUGS (2)
  1. ESCITALOPRAM [Suspect]
     Indication: DEPRESSION
     Dosage: 10 mg 1 qd oral
     Route: 048
     Dates: start: 20120919, end: 20121128
  2. ESCITALOPRAM [Suspect]
     Indication: POST-TRAUMATIC STRESS DISORDER
     Dosage: 10 mg 1 qd oral
     Route: 048
     Dates: start: 20120919, end: 20121128

REACTIONS (3)
  - Dizziness [None]
  - Nausea [None]
  - Fatigue [None]
